FAERS Safety Report 23297275 (Version 1)
Quarter: 2023Q4

REPORT INFORMATION
  Report Type: Report from Study
  Country: EG (occurrence: EG)
  Receive Date: 20231214
  Receipt Date: 20231214
  Transmission Date: 20240110
  Serious: Yes (Hospitalization)
  Sender: FDA-Public Use
  Company Number: EG-ABBVIE-5535935

PATIENT
  Age: 36 Year
  Sex: Female

DRUGS (1)
  1. RINVOQ [Suspect]
     Active Substance: UPADACITINIB
     Indication: Colitis ulcerative
     Dosage: 3 TABLET
     Route: 048
     Dates: start: 20230909

REACTIONS (3)
  - Haematochezia [Recovered/Resolved]
  - Drug ineffective [Unknown]
  - Abdominal pain [Recovered/Resolved]

NARRATIVE: CASE EVENT DATE: 20230901
